FAERS Safety Report 9307844 (Version 1)
Quarter: 2013Q2

REPORT INFORMATION
  Report Type: Spontaneous
  Country: CN (occurrence: CN)
  Receive Date: 20130524
  Receipt Date: 20130524
  Transmission Date: 20140414
  Serious: Yes (Hospitalization)
  Sender: FDA-Public Use
  Company Number: CN-ELI_LILLY_AND_COMPANY-CN201305006458

PATIENT
  Age: 13 Year
  Sex: Female

DRUGS (4)
  1. OLANZAPINE [Suspect]
     Indication: HALLUCINATION
     Dosage: 5 MG, UNK
  2. OLANZAPINE [Suspect]
     Dosage: 10 MG, UNK
  3. TOPIRAMATE [Concomitant]
     Indication: HALLUCINATION
     Dosage: 150 MG, UNK
  4. TOPIRAMATE [Concomitant]
     Dosage: 175 MG, UNK

REACTIONS (4)
  - Metabolic acidosis [Recovered/Resolved]
  - Renal tubular acidosis [Recovered/Resolved]
  - Hallucination [Recovered/Resolved]
  - Extrapyramidal disorder [Unknown]
